FAERS Safety Report 6272042-5 (Version None)
Quarter: 2009Q3

REPORT INFORMATION
  Report Type: 
  Country: None (occurrence: None)
  Receive Date: 20090717
  Receipt Date: 20090707
  Transmission Date: 20100115
  Serious: Yes (Hospitalization)
  Sender: FDA-Public Use
  Company Number: A0796706A

PATIENT
  Age: 67 Year
  Sex: Male

DRUGS (1)
  1. AVANDIA [Suspect]
     Dosage: 4MG TWICE PER DAY
     Dates: start: 19950101, end: 20050101

REACTIONS (17)
  - ANAEMIA [None]
  - CARDIAC DISORDER [None]
  - CARDIAC FAILURE CHRONIC [None]
  - CEREBROVASCULAR ACCIDENT [None]
  - CORONARY ARTERY DISEASE [None]
  - DEPRESSION [None]
  - DISABILITY [None]
  - FLUID RETENTION [None]
  - INSOMNIA [None]
  - LIVER DISORDER [None]
  - MYOCARDIAL INFARCTION [None]
  - PAIN [None]
  - PLEURAL EFFUSION [None]
  - QUALITY OF LIFE DECREASED [None]
  - RENAL IMPAIRMENT [None]
  - TRANSIENT ISCHAEMIC ATTACK [None]
  - WEIGHT INCREASED [None]
